FAERS Safety Report 7889952-5 (Version None)
Quarter: 2011Q4

REPORT INFORMATION
  Report Type: 
  Country: None (occurrence: None)
  Receive Date: 20111103
  Receipt Date: 20110719
  Transmission Date: 20120403
  Serious: Yes (Hospitalization, Other)
  Sender: FDA-Public Use
  Company Number: US-ELI_LILLY_AND_COMPANY-US201106006076

PATIENT
  Sex: Male

DRUGS (2)
  1. FORTEO [Suspect]
     Indication: OSTEOPOROSIS
     Dosage: 20 UG, QD
     Dates: start: 20110401, end: 20110501
  2. FORTEO [Suspect]
     Dosage: 20 UG, QD
     Dates: start: 20110612

REACTIONS (9)
  - LIVER INJURY [None]
  - VOMITING [None]
  - CLOSTRIDIAL INFECTION [None]
  - CARDIOMEGALY [None]
  - DEVICE MISUSE [None]
  - HEPATITIS C [None]
  - NAUSEA [None]
  - FOOD POISONING [None]
  - MALAISE [None]
